FAERS Safety Report 15457736 (Version 4)
Quarter: 2021Q4

REPORT INFORMATION
  Report Type: Spontaneous
  Country: CA (occurrence: CA)
  Receive Date: 20181003
  Receipt Date: 20211224
  Transmission Date: 20220303
  Serious: Yes (Other)
  Sender: FDA-Public Use
  Company Number: CA-AUROBINDO-AUR-APL-2018-046970

PATIENT
  Age: 51 Year
  Sex: Female

DRUGS (3)
  1. LAMOTRIGINE [Suspect]
     Active Substance: LAMOTRIGINE
     Indication: Bipolar II disorder
     Dosage: 150 MILLIGRAM, ONCE A DAY
     Route: 065
  2. QUETIAPINE [Suspect]
     Active Substance: QUETIAPINE
     Indication: Bipolar II disorder
     Dosage: 50 MILLIGRAM
     Route: 065
  3. LITHIUM [Concomitant]
     Active Substance: LITHIUM
     Indication: Bipolar II disorder
     Dosage: 600 MILLIGRAM, ONCE A DAY
     Route: 065

REACTIONS (3)
  - Obsessive-compulsive disorder [Not Recovered/Not Resolved]
  - Product use in unapproved indication [Not Recovered/Not Resolved]
  - Off label use [Not Recovered/Not Resolved]
